FAERS Safety Report 8409639 (Version 3)
Quarter: 2014Q1

REPORT INFORMATION
  Report Type: Spontaneous
  Country: US (occurrence: None)
  Receive Date: 20111227
  Receipt Date: 20130107
  Transmission Date: 20141002
  Serious: No
  Sender: FDA-Public Use
  Company Number: PHEH2011US03252

PATIENT
  Age: 31 Year
  Sex: Female

DRUGS (1)
  1. GILENYA [Suspect]
     Indication: MULTIPLE SCLEROSIS
     Route: 048

REACTIONS (7)
  - Body temperature decreased [None]
  - Lethargy [None]
  - Peripheral coldness [None]
  - Palpitations [None]
  - Headache [None]
  - Feeling abnormal [None]
  - Hepatic enzyme increased [None]
